FAERS Safety Report 7868189-X (Version None)
Quarter: 2011Q4

REPORT INFORMATION
  Report Type: 
  Country: None (occurrence: None)
  Receive Date: 20111028
  Receipt Date: 20111019
  Transmission Date: 20120403
  Serious: Yes (Other)
  Sender: FDA-Public Use
  Company Number: PHHY2011GB92948

PATIENT
  Age: 17 Year

DRUGS (7)
  1. BENZODIAZEPINES [Suspect]
     Dosage: UNK UKN, UNK
  2. GABAPENTIN [Suspect]
     Dosage: UNK UKN, UNK
  3. VASOPRESSIN [Suspect]
     Dosage: UNK UKN, UNK
  4. HYDROCORTISONE [Suspect]
     Dosage: UNK UKN, UNK
  5. PROPOFOL [Suspect]
     Dosage: UNK UKN, UNK
     Route: 042
  6. MORPHINE [Suspect]
     Dosage: UNK UKN, UNK
  7. H2 ANTAGONIST [Suspect]
     Dosage: UNK UKN, UNK

REACTIONS (7)
  - BACTERAEMIA [None]
  - HYPERKALAEMIA [None]
  - RHABDOMYOLYSIS [None]
  - STAPHYLOCOCCAL SEPSIS [None]
  - ACIDOSIS [None]
  - RENAL FAILURE ACUTE [None]
  - HYPOPHOSPHATAEMIA [None]
